FAERS Safety Report 10468951 (Version 1)
Quarter: 2014Q3

REPORT INFORMATION
  Report Type: Not Available
  Country: GB (occurrence: GB)
  Receive Date: 20140923
  Receipt Date: 20140923
  Transmission Date: 20150326
  Serious: Yes (Other)
  Sender: FDA-Public Use
  Company Number: GB-BEH-2014045046

PATIENT
  Age: 37 Year
  Sex: Female

DRUGS (1)
  1. ANTI-D IMMUNOGLOBULIN [Suspect]
     Active Substance: IMMUNE GLOBULIN, ANTI-HUMAN
     Dosage: START AND STOP DATE ??-MAR-2013

REACTIONS (2)
  - Rhesus antibodies positive [Unknown]
  - Vaginal haemorrhage [Unknown]

NARRATIVE: CASE EVENT DATE: 20140122
